FAERS Safety Report 15250717 (Version 1)
Quarter: 2018Q3

REPORT INFORMATION
  Report Type: Spontaneous
  Country: GB (occurrence: GB)
  Receive Date: 20180807
  Receipt Date: 20180807
  Transmission Date: 20181010
  Serious: Yes (Other)
  Sender: FDA-Public Use
  Company Number: PHHY2018GB062132

PATIENT
  Age: 60 Year
  Sex: Female

DRUGS (2)
  1. OMEPRAZOLE. [Suspect]
     Active Substance: OMEPRAZOLE
     Indication: COUGH
     Dosage: 20 MG, QD
     Route: 048
     Dates: start: 20180604, end: 20180606
  2. SIMVASTATIN. [Concomitant]
     Active Substance: SIMVASTATIN
     Indication: PRODUCT USED FOR UNKNOWN INDICATION
     Dosage: UNK
     Route: 065

REACTIONS (6)
  - Thirst [Unknown]
  - Headache [Unknown]
  - Fatigue [Unknown]
  - Neck pain [Unknown]
  - Dizziness [Unknown]
  - Photophobia [Unknown]

NARRATIVE: CASE EVENT DATE: 20180604
